FAERS Safety Report 10355179 (Version 1)
Quarter: 2014Q3

REPORT INFORMATION
  Report Type: Spontaneous
  Country: US (occurrence: None)
  Receive Date: 20140730
  Receipt Date: 20140730
  Transmission Date: 20150326
  Serious: Yes (Death, Hospitalization)
  Sender: FDA-Public Use
  Company Number: None

PATIENT
  Age: 9 Year
  Sex: Female
  Weight: 74.4 kg

DRUGS (3)
  1. ETOPOSIDE (VP-16) [Suspect]
     Active Substance: ETOPOSIDE
     Dates: end: 20140623
  2. CYTARABINE. [Suspect]
     Active Substance: CYTARABINE
     Dates: end: 20140629
  3. DAUNORUBICIN [Suspect]
     Active Substance: DAUNORUBICIN
     Dates: end: 20140623

REACTIONS (24)
  - Thrombocytopenia [None]
  - Coagulopathy [None]
  - Pneumomediastinum [None]
  - Escherichia sepsis [None]
  - Jaundice [None]
  - Gingival bleeding [None]
  - Gingival hyperplasia [None]
  - Respiratory distress [None]
  - Bradycardia [None]
  - Hepatosplenomegaly [None]
  - Pneumothorax [None]
  - Hypotension [None]
  - Headache [None]
  - Hyperbilirubinaemia [None]
  - Mydriasis [None]
  - Miosis [None]
  - Mouth haemorrhage [None]
  - Cholelithiasis [None]
  - Vomiting [None]
  - Tumour lysis syndrome [None]
  - Candida infection [None]
  - White blood cell count increased [None]
  - Neutropenia [None]
  - Acute monocytic leukaemia [None]

NARRATIVE: CASE EVENT DATE: 20140723
